FAERS Safety Report 22246679 (Version 4)
Quarter: 2024Q1

REPORT INFORMATION
  Report Type: Spontaneous
  Country: US (occurrence: US)
  Receive Date: 20230424
  Receipt Date: 20240319
  Transmission Date: 20240410
  Serious: No
  Sender: FDA-Public Use
  Company Number: US-BRISTOL-MYERS SQUIBB COMPANY-2023-057716

PATIENT
  Age: 64 Year
  Sex: Female

DRUGS (1)
  1. REVLIMID [Suspect]
     Active Substance: LENALIDOMIDE
     Indication: Plasma cell myeloma
     Route: 048

REACTIONS (6)
  - Oropharyngeal pain [Unknown]
  - Oesophageal pain [Unknown]
  - Memory impairment [Unknown]
  - Product dose omission issue [Unknown]
  - Pruritus [Unknown]
  - Paraesthesia [Recovered/Resolved]
